FAERS Safety Report 23409178 (Version 1)
Quarter: 2024Q1

REPORT INFORMATION
  Report Type: Spontaneous
  Country: US (occurrence: None)
  Receive Date: 20240115
  Receipt Date: 20240115
  Transmission Date: 20240409
  Serious: No
  Sender: FDA-Public Use
  Company Number: None

PATIENT
  Age: 60 Year
  Sex: Male
  Weight: 112.5 kg

DRUGS (3)
  1. VARDENAFIL [Suspect]
     Active Substance: VARDENAFIL HYDROCHLORIDE
     Indication: Erectile dysfunction
     Dosage: FREQUENCY : AS NEEDED;?
     Route: 048
     Dates: start: 20230902, end: 20231231
  2. VIAGRA [Concomitant]
     Active Substance: SILDENAFIL CITRATE
  3. Ciallis [Concomitant]

REACTIONS (2)
  - Transient global amnesia [None]
  - Product substitution issue [None]

NARRATIVE: CASE EVENT DATE: 20240101
